FAERS Safety Report 8875290 (Version 1)
Quarter: 2012Q4

REPORT INFORMATION
  Report Type: 
  Country: US (occurrence: US)
  Receive Date: 20121026
  Receipt Date: 20121026
  Transmission Date: 20130627
  Serious: No
  Sender: FDA-Public Use
  Company Number: US-AMGEN-USASP2012044690

PATIENT
  Age: 64 Year
  Sex: Female
  Weight: 152.38 kg

DRUGS (14)
  1. ENBREL [Suspect]
     Indication: PRODUCT USED FOR UNKNOWN INDICATION
     Dosage: 50 mg, qwk
     Route: 058
  2. VICTOZA [Concomitant]
     Dosage: 18 mg, UNK
  3. LANTUS [Concomitant]
     Dosage: UNK
  4. DYAZIDE [Concomitant]
     Dosage: UNK
  5. FUROSEMIDE [Concomitant]
     Dosage: 20 mg, UNK
  6. LIPITOR [Concomitant]
     Dosage: 10 mg, UNK
  7. COLCRYS [Concomitant]
     Dosage: 0.6 mg, UNK
  8. PAXIL [Concomitant]
     Dosage: 20 mg, UNK
  9. LISINOPRIL [Concomitant]
     Dosage: 40 mg, UNK
  10. MULTIVITAMINS, PLAIN [Concomitant]
     Dosage: UNK
  11. GLIPIZIDE [Concomitant]
     Dosage: 5 mg, UNK
  12. ATENOLOL [Concomitant]
     Dosage: 50 mg, UNK
  13. TRAZODONE [Concomitant]
     Dosage: 50 mg, UNK
  14. CLONIDINE [Concomitant]
     Dosage: 0.1 mg, UNK

REACTIONS (2)
  - Injection site reaction [Unknown]
  - Injection site pruritus [Unknown]
